FAERS Safety Report 12693917 (Version 2)
Quarter: 2016Q4

REPORT INFORMATION
  Report Type: Spontaneous
  Country: US (occurrence: US)
  Receive Date: 20160829
  Receipt Date: 20161026
  Transmission Date: 20170207
  Serious: No
  Sender: FDA-Public Use
  Company Number: US-009507513-1608USA013626

PATIENT
  Age: 21 Year
  Sex: Female
  Weight: 90.25 kg

DRUGS (1)
  1. NEXPLANON [Suspect]
     Active Substance: ETONOGESTREL
     Indication: CONTRACEPTION
     Dosage: 1 DF, UNK
     Route: 059
     Dates: start: 20160919, end: 20160924

REACTIONS (7)
  - Device kink [Recovered/Resolved]
  - Neuralgia [Recovered/Resolved]
  - Device breakage [Recovered/Resolved]
  - Implant site pain [Recovered/Resolved]
  - Device expulsion [Unknown]
  - Device deployment issue [Recovered/Resolved]
  - Discomfort [Unknown]

NARRATIVE: CASE EVENT DATE: 201609
